FAERS Safety Report 16778066 (Version 2)
Quarter: 2019Q4

REPORT INFORMATION
  Report Type: Report from Study
  Country: US (occurrence: US)
  Receive Date: 20190905
  Receipt Date: 20191003
  Transmission Date: 20200122
  Serious: Yes (Hospitalization, Other)
  Sender: FDA-Public Use
  Company Number: US-ACTELION-A-NJ2019-195015

PATIENT
  Age: 55 Year
  Sex: Male

DRUGS (21)
  1. PANTOPRAZOLE [Concomitant]
     Active Substance: PANTOPRAZOLE
  2. SUCRALFATE. [Concomitant]
     Active Substance: SUCRALFATE
  3. OXYCODONE [Concomitant]
     Active Substance: OXYCODONE
  4. OPSUMIT [Suspect]
     Active Substance: MACITENTAN
     Indication: PULMONARY ARTERIAL HYPERTENSION
     Dosage: 10 MG, QD
     Route: 048
     Dates: start: 20180410
  5. ALBUTEROL. [Concomitant]
     Active Substance: ALBUTEROL
  6. ALENDRONATE [Concomitant]
     Active Substance: ALENDRONATE SODIUM
  7. HYDROCHLOROTH [Concomitant]
     Active Substance: HYDROCHLOROTHIAZIDE
  8. ONDANSETRON [Concomitant]
     Active Substance: ONDANSETRON
  9. POTASSIUM CHLORIDE. [Concomitant]
     Active Substance: POTASSIUM CHLORIDE
  10. CREON [Concomitant]
     Active Substance: PANCRELIPASE AMYLASE\PANCRELIPASE LIPASE\PANCRELIPASE PROTEASE
  11. FUROSEMIDE. [Concomitant]
     Active Substance: FUROSEMIDE
  12. ALPRAZOLAM. [Concomitant]
     Active Substance: ALPRAZOLAM
  13. METOCLOPRAM [Concomitant]
     Active Substance: METOCLOPRAMIDE
  14. ZOLPIDEM [Concomitant]
     Active Substance: ZOLPIDEM TARTRATE
  15. DRONABINOL. [Concomitant]
     Active Substance: DRONABINOL
  16. ROSUVASTATIN. [Concomitant]
     Active Substance: ROSUVASTATIN
  17. ADCIRCA [Concomitant]
     Active Substance: TADALAFIL
  18. A-HYDROCORT [Concomitant]
     Active Substance: HYDROCORTISONE SODIUM SUCCINATE
  19. PROMETHAZINE [Concomitant]
     Active Substance: PROMETHAZINE HYDROCHLORIDE
  20. VIT D [Concomitant]
     Active Substance: VITAMIN D NOS
  21. FENTANYL. [Concomitant]
     Active Substance: FENTANYL

REACTIONS (2)
  - Pancreatic carcinoma [Not Recovered/Not Resolved]
  - Hospitalisation [Unknown]

NARRATIVE: CASE EVENT DATE: 201907
